FAERS Safety Report 8623268-4 (Version None)
Quarter: 2012Q3

REPORT INFORMATION
  Report Type: 
  Country: None (occurrence: None)
  Receive Date: 20120824
  Receipt Date: 20120824
  Transmission Date: 20120928
  Serious: No
  Sender: FDA-Public Use
  Company Number: None

PATIENT
  Age: 33 Year
  Sex: Male
  Weight: 81.6475 kg

DRUGS (3)
  1. CYMBALTA [Suspect]
     Indication: DEPRESSION
     Dosage: DAILY
  2. CYMBALTA [Suspect]
     Indication: INSOMNIA
     Dosage: DAILY
  3. CYMBALTA [Suspect]
     Indication: NEURALGIA
     Dosage: DAILY

REACTIONS (1)
  - BLOOD BILIRUBIN INCREASED [None]
